FAERS Safety Report 7798215-8 (Version None)
Quarter: 2011Q4

REPORT INFORMATION
  Report Type: 
  Country: None (occurrence: None)
  Receive Date: 20111005
  Receipt Date: 20110928
  Transmission Date: 20120403
  Serious: Yes (Death, Hospitalization, Other)
  Sender: FDA-Public Use
  Company Number: PL-JNJFOC-2004091192

PATIENT
  Age: 18 Year
  Sex: Female

DRUGS (3)
  1. ZYRTEC [Suspect]
     Route: 065
  2. ZYRTEC [Suspect]
     Indication: RHINITIS ALLERGIC
     Dosage: 270 MG, 7 TABS
     Route: 065
     Dates: start: 20030501, end: 20030501
  3. CETIRIZINE HCL [Suspect]
     Indication: RHINITIS ALLERGIC
     Dosage: DAILY DOSE QTY: 200 MG
     Route: 065
     Dates: end: 20030501

REACTIONS (12)
  - COMPLETED SUICIDE [None]
  - HYPOTENSION [None]
  - RESPIRATORY FAILURE [None]
  - METABOLIC ACIDOSIS [None]
  - HYPOKALAEMIA [None]
  - CARDIAC ARREST [None]
  - HEART RATE DECREASED [None]
  - VENTRICULAR FIBRILLATION [None]
  - COMA [None]
  - VENTRICULAR TACHYCARDIA [None]
  - CONVULSION [None]
  - INTENTIONAL OVERDOSE [None]
